FAERS Safety Report 11006096 (Version 1)
Quarter: 2015Q2

REPORT INFORMATION
  Report Type: Report from Study
  Country: BR (occurrence: BR)
  Receive Date: 20150409
  Receipt Date: 20150409
  Transmission Date: 20150821
  Serious: Yes (Life-Threatening, Hospitalization)
  Sender: FDA-Public Use
  Company Number: PHHY2014BR166397

PATIENT
  Sex: Male
  Weight: 110 kg

DRUGS (7)
  1. SANDOSTATIN LAR DEPOT [Suspect]
     Active Substance: OCTREOTIDE ACETATE
     Dosage: 1 DF, QMO
     Route: 065
     Dates: end: 201411
  2. VENLAFAXINE HYDROCLORIDE [Suspect]
     Active Substance: VENLAFAXINE HYDROCHLORIDE
     Indication: DEPRESSION
     Dosage: 3 DF, QD
     Route: 065
  3. SANDOSTATIN LAR DEPOT [Suspect]
     Active Substance: OCTREOTIDE ACETATE
     Indication: SMALL INTESTINE CARCINOMA
     Dosage: 1 DF (30 MG), QMO
     Route: 065
     Dates: end: 201410
  4. GLICAZIDA [Concomitant]
     Indication: BLOOD GLUCOSE INCREASED
     Route: 065
  5. SANDOSTATIN LAR DEPOT [Suspect]
     Active Substance: OCTREOTIDE ACETATE
     Indication: NEUROENDOCRINE TUMOUR
     Dosage: 30 MG, QMO
     Route: 065
     Dates: start: 2010
  6. METFORMIN [Concomitant]
     Active Substance: METFORMIN HYDROCHLORIDE
     Indication: BLOOD GLUCOSE INCREASED
     Dosage: 3 DF, QD
     Route: 065
  7. AMLODIPINO//AMLODIPINE [Concomitant]
     Indication: BLOOD PRESSURE ABNORMAL
     Dosage: 1 DF, QD
     Route: 065

REACTIONS (7)
  - Somnolence [Not Recovered/Not Resolved]
  - Wound dehiscence [Recovering/Resolving]
  - Eschar [Unknown]
  - Movement disorder [Unknown]
  - Skin disorder [Unknown]
  - Diarrhoea [Not Recovered/Not Resolved]
  - Coma [Unknown]
